FAERS Safety Report 18406183 (Version 2)
Quarter: 2020Q4

REPORT INFORMATION
  Report Type: Spontaneous
  Country: US (occurrence: US)
  Receive Date: 20201020
  Receipt Date: 20201103
  Transmission Date: 20210114
  Serious: No
  Sender: FDA-Public Use
  Company Number: US-009507513-2010USA006422

PATIENT
  Age: 35 Year
  Sex: Female

DRUGS (1)
  1. NEXPLANON [Suspect]
     Active Substance: ETONOGESTREL
     Indication: SKIN INFECTION
     Dosage: 1 IMPLANT IN LEFT ARM (ROUTE ALSO REPORTED AS ORAL-CONFLICTING INFORMATION)
     Route: 059
     Dates: start: 20200717, end: 20201013

REACTIONS (3)
  - Skin infection [Recovering/Resolving]
  - Product use in unapproved indication [Unknown]
  - Device expulsion [Recovered/Resolved]

NARRATIVE: CASE EVENT DATE: 2020
